FAERS Safety Report 16989284 (Version 3)
Quarter: 2020Q2

REPORT INFORMATION
  Report Type: Spontaneous
  Country: US (occurrence: US)
  Receive Date: 20191104
  Receipt Date: 20200506
  Transmission Date: 20200713
  Serious: Yes (Other)
  Sender: FDA-Public Use
  Company Number: US-PFIZER INC-2019472742

PATIENT
  Age: 65 Year
  Sex: Female
  Weight: 54.43 kg

DRUGS (2)
  1. IBRANCE [Suspect]
     Active Substance: PALBOCICLIB
     Indication: BREAST CANCER FEMALE
     Dosage: 100 MG, UNK
  2. IBRANCE [Suspect]
     Active Substance: PALBOCICLIB
     Dosage: 75 MG, CYCLIC (DAILY FOR 21 DAYS THEN OFF OF 7 DAYS)
     Route: 048

REACTIONS (2)
  - Blood count abnormal [Unknown]
  - Neutropenia [Unknown]

NARRATIVE: CASE EVENT DATE: 2017
